FAERS Safety Report 7003756-7 (Version None)
Quarter: 2010Q3

REPORT INFORMATION
  Report Type: 
  Country: None (occurrence: None)
  Receive Date: 20100920
  Receipt Date: 20090915
  Transmission Date: 20110219
  Serious: No
  Sender: FDA-Public Use
  Company Number: US-WYE-H11009609

PATIENT
  Sex: Female
  Weight: 59.93 kg

DRUGS (3)
  1. PROTONIX [Suspect]
     Indication: GASTROOESOPHAGEAL REFLUX DISEASE
     Route: 048
     Dates: start: 20090801
  2. LEVOTHYROXINE SODIUM [Interacting]
     Dosage: UNKNOWN
     Dates: start: 20090801, end: 20090801
  3. SYNTHROID [Concomitant]

REACTIONS (5)
  - DRUG INTERACTION [None]
  - OESOPHAGEAL PAIN [None]
  - RASH ERYTHEMATOUS [None]
  - RASH PRURITIC [None]
  - THROAT IRRITATION [None]
